FAERS Safety Report 7511200-6 (Version None)
Quarter: 2011Q2

REPORT INFORMATION
  Report Type: 
  Country: None (occurrence: None)
  Receive Date: 20110531
  Receipt Date: 20110517
  Transmission Date: 20111010
  Serious: Yes (Other)
  Sender: FDA-Public Use
  Company Number: PHFR2011GB01896

PATIENT
  Sex: Female

DRUGS (2)
  1. CITALOPRAM HYDROBROMIDE [Concomitant]
     Indication: DEPRESSION
     Dosage: 20 MG
     Route: 048
  2. CLOZARIL [Suspect]
     Indication: SCHIZOPHRENIA
     Dosage: 200 MG,
     Route: 048
     Dates: start: 20110221, end: 20110311

REACTIONS (5)
  - URINARY TRACT INFECTION [None]
  - ATRIAL FIBRILLATION [None]
  - PYREXIA [None]
  - CONFUSIONAL STATE [None]
  - MALAISE [None]
